FAERS Safety Report 4864483-5 (Version None)
Quarter: 2005Q4

REPORT INFORMATION
  Report Type: 
  Country: None (occurrence: None)
  Receive Date: 20051222
  Receipt Date: 20050428
  Transmission Date: 20060501
  Serious: Yes (Hospitalization)
  Sender: FDA-Public Use
  Company Number: FR-BRISTOL-MYERS SQUIBB COMPANY-12949996

PATIENT
  Age: 35 Year
  Sex: Male

DRUGS (2)
  1. MODECATE INJ [Suspect]
     Indication: SCHIZOPHRENIA
     Route: 030
     Dates: start: 20041220, end: 20050225
  2. LARGACTIL [Suspect]
     Indication: SCHIZOPHRENIA
     Route: 048
     Dates: start: 20050105, end: 20050225

REACTIONS (1)
  - FACE OEDEMA [None]
